FAERS Safety Report 9028767 (Version 1)
Quarter: 2013Q1

REPORT INFORMATION
  Report Type: Spontaneous
  Country: US (occurrence: US)
  Receive Date: 20130124
  Receipt Date: 20130124
  Transmission Date: 20140127
  Serious: No
  Sender: FDA-Public Use
  Company Number: US-BAUSCH-2012BL003832

PATIENT
  Age: 87 Year
  Sex: Female

DRUGS (2)
  1. ALAWAY [Suspect]
     Indication: DRY EYE
     Route: 047
     Dates: start: 20120609, end: 20120610
  2. ALAWAY [Suspect]
     Indication: OFF LABEL USE

REACTIONS (4)
  - Eye irritation [Recovered/Resolved]
  - Ocular hyperaemia [Recovering/Resolving]
  - Eyelid oedema [Recovering/Resolving]
  - Eye pruritus [Recovering/Resolving]
